FAERS Safety Report 9460714 (Version 1)
Quarter: 2013Q3

REPORT INFORMATION
  Report Type: Spontaneous
  Country: DE (occurrence: None)
  Receive Date: 20130813
  Receipt Date: 20130813
  Transmission Date: 20140515
  Serious: Yes (Life-Threatening, Hospitalization, Disabling)
  Sender: FDA-Public Use
  Company Number: GER/GER/13/0033930

PATIENT
  Age: 77 Year
  Sex: Male
  Weight: 92 kg

DRUGS (6)
  1. PANTOPRAZOLE [Suspect]
     Indication: PRODUCT USED FOR UNKNOWN INDICATION
     Route: 048
     Dates: start: 20130415, end: 20130420
  2. CLARITHROMYCIN [Suspect]
     Indication: PRODUCT USED FOR UNKNOWN INDICATION
     Dosage: 2 IN 1 D
     Route: 048
     Dates: start: 20130415, end: 20130420
  3. XARELTO [Suspect]
     Indication: PULMONARY EMBOLISM
     Dosage: 15 MG 2 IN 1 D
     Route: 048
     Dates: start: 20130413, end: 20130421
  4. BISOPROLOL (BISOPROLOL) [Concomitant]
  5. SIMVASTATIN (SIMVASTATIN) [Concomitant]
  6. AMOXICILLIN (AMOXICILLIN) [Concomitant]

REACTIONS (2)
  - Cerebral haemorrhage [None]
  - Pituitary tumour benign [None]
